FAERS Safety Report 19181199 (Version 5)
Quarter: 2022Q3

REPORT INFORMATION
  Report Type: Report from Study
  Country: GT (occurrence: GT)
  Receive Date: 20210426
  Receipt Date: 20220723
  Transmission Date: 20221027
  Serious: Yes (Life-Threatening, Hospitalization)
  Sender: FDA-Public Use
  Company Number: NVSC2020GT158913

PATIENT
  Age: 41 Year
  Sex: Female
  Weight: 65 kg

DRUGS (13)
  1. XOLAIR [Suspect]
     Active Substance: OMALIZUMAB
     Indication: Chronic spontaneous urticaria
     Dosage: 300 MG, QMO
     Route: 058
     Dates: start: 201811
  2. XOLAIR [Suspect]
     Active Substance: OMALIZUMAB
     Dosage: UNK
     Route: 065
  3. XOLAIR [Suspect]
     Active Substance: OMALIZUMAB
     Dosage: 300 MG, 7 TO 8 WEEKS
     Route: 065
  4. XOLAIR [Suspect]
     Active Substance: OMALIZUMAB
     Dosage: 300 MG, EVERY 8 WEEKS
     Route: 065
     Dates: start: 20210708
  5. XOLAIR [Suspect]
     Active Substance: OMALIZUMAB
     Dosage: 150 MG (1 YEAR AND A HALF AGO)
     Route: 065
  6. XOLAIR [Suspect]
     Active Substance: OMALIZUMAB
     Dosage: 300 MG, EVERY 8 WEEKS
     Route: 058
  7. MONTELUKAST [Suspect]
     Active Substance: MONTELUKAST SODIUM
     Indication: Antiallergic therapy
     Dosage: 10 MG
     Route: 065
  8. MEROPENEM [Suspect]
     Active Substance: MEROPENEM
     Indication: Product used for unknown indication
     Dosage: UNK
     Route: 042
  9. ESOMEPRAZOLE [Concomitant]
     Active Substance: ESOMEPRAZOLE
     Indication: Gastrooesophageal reflux disease
     Dosage: 40 MG, BID
     Route: 048
     Dates: start: 2020
  10. EPINASTINE [Concomitant]
     Active Substance: EPINASTINE
     Indication: Antiallergic therapy
     Dosage: UNK
     Route: 031
  11. FLUTICASONE FUROATE [Concomitant]
     Active Substance: FLUTICASONE FUROATE
     Indication: Rhinitis
     Dosage: UNK
     Route: 045
  12. CETIRIZINE HYDROCHLORIDE [Concomitant]
     Active Substance: CETIRIZINE HYDROCHLORIDE
     Indication: Hypersensitivity
     Dosage: 10 MG
     Route: 065
  13. LEVOCETIRIZINE [Concomitant]
     Active Substance: LEVOCETIRIZINE
     Indication: Hypersensitivity
     Dosage: 5 MG
     Route: 065

REACTIONS (24)
  - Tracheal obstruction [Unknown]
  - Feeling abnormal [Unknown]
  - Gastrointestinal infection [Unknown]
  - Escherichia infection [Unknown]
  - Adverse reaction [Unknown]
  - Arthritis [Unknown]
  - Inflammation [Unknown]
  - Fear [Unknown]
  - Blister [Unknown]
  - Fluid retention [Unknown]
  - Vomiting [Unknown]
  - Joint swelling [Unknown]
  - Weight increased [Unknown]
  - Pain [Unknown]
  - Nausea [Unknown]
  - Gastritis [Unknown]
  - Hypersensitivity [Unknown]
  - Urticaria [Unknown]
  - Headache [Unknown]
  - Arthralgia [Unknown]
  - Muscle rigidity [Unknown]
  - Depression [Unknown]
  - Alopecia [Unknown]
  - Off label use [Unknown]

NARRATIVE: CASE EVENT DATE: 20200301
